FAERS Safety Report 7077591-8 (Version None)
Quarter: 2010Q4

REPORT INFORMATION
  Report Type: 
  Country: None (occurrence: None)
  Receive Date: 20101101
  Receipt Date: 20101027
  Transmission Date: 20110411
  Serious: Yes (Other)
  Sender: FDA-Public Use
  Company Number: GB-EISAI INC.-E2020-07835-SOL-GB

PATIENT
  Sex: Female

DRUGS (1)
  1. ARICEPT [Suspect]
     Dosage: UNKNOWN
     Route: 048

REACTIONS (1)
  - DELIRIUM [None]
